FAERS Safety Report 25577040 (Version 2)
Quarter: 2025Q3

REPORT INFORMATION
  Report Type: Spontaneous
  Country: EU (occurrence: EU)
  Receive Date: 20250718
  Receipt Date: 20250816
  Transmission Date: 20251020
  Serious: Yes (Other)
  Sender: AUROBINDO
  Company Number: EU-ELI_LILLY_AND_COMPANY-ES202502003344

PATIENT
  Age: 52 Year
  Sex: Female

DRUGS (4)
  1. LETROZOLE [Suspect]
     Active Substance: LETROZOLE
     Indication: Breast cancer
     Route: 065
  2. ABEMACICLIB [Suspect]
     Active Substance: ABEMACICLIB
     Indication: Breast cancer
     Dosage: UNK UNK, TWO TIMES A DAY
     Route: 048
     Dates: start: 202411
  3. ABEMACICLIB [Suspect]
     Active Substance: ABEMACICLIB
     Dosage: 200 MILLIGRAM, ONCE A DAY
     Route: 048
     Dates: start: 20250124
  4. ABEMACICLIB [Suspect]
     Active Substance: ABEMACICLIB
     Dosage: 200 MILLIGRAM, ONCE A DAY
     Route: 048

REACTIONS (25)
  - Renal injury [Recovered/Resolved]
  - Bone pain [Recovering/Resolving]
  - Bone disorder [Recovering/Resolving]
  - Joint swelling [Recovering/Resolving]
  - Decreased immune responsiveness [Recovered/Resolved]
  - Nasopharyngitis [Recovering/Resolving]
  - Diarrhoea [Recovering/Resolving]
  - Gingival pain [Recovering/Resolving]
  - Anaemia [Recovering/Resolving]
  - Arthropathy [Recovering/Resolving]
  - Fatigue [Recovering/Resolving]
  - Abnormal faeces [Recovering/Resolving]
  - Malaise [Recovering/Resolving]
  - Arthralgia [Recovering/Resolving]
  - Taste disorder [Recovering/Resolving]
  - Feeling abnormal [Recovered/Resolved]
  - Dehydration [Recovered/Resolved]
  - Photopsia [Recovered/Resolved]
  - Muscle spasms [Recovering/Resolving]
  - Movement disorder [Recovering/Resolving]
  - Sleep disorder due to general medical condition, insomnia type [Recovering/Resolving]
  - Decreased activity [Recovering/Resolving]
  - Mental disorder [Recovering/Resolving]
  - Nausea [Recovering/Resolving]
  - Pain in extremity [Recovering/Resolving]

NARRATIVE: CASE EVENT DATE: 20250130
